FAERS Safety Report 21905748 (Version 1)
Quarter: 2023Q1

REPORT INFORMATION
  Report Type: Spontaneous
  Country: JP (occurrence: JP)
  Receive Date: 20230124
  Receipt Date: 20230124
  Transmission Date: 20230417
  Serious: Yes (Death)
  Sender: FDA-Public Use
  Company Number: JP-NEUROCRINE BIOSCIENCES INC.-2023NBI00577

PATIENT

DRUGS (1)
  1. VALBENAZINE [Suspect]
     Active Substance: VALBENAZINE
     Indication: Product used for unknown indication
     Dosage: UNKNOWN
     Route: 048

REACTIONS (1)
  - Death [Fatal]
